FAERS Safety Report 9395963 (Version 7)
Quarter: 2013Q4

REPORT INFORMATION
  Report Type: Spontaneous
  Country: BE (occurrence: None)
  Receive Date: 20130708
  Receipt Date: 20131209
  Transmission Date: 20140711
  Serious: Yes (Hospitalization)
  Sender: FDA-Public Use
  Company Number: SYM-2013-05316

PATIENT
  Age: 65 Year
  Sex: Female

DRUGS (12)
  1. 5 FU [Suspect]
     Indication: COLORECTAL CANCER METASTATIC
     Route: 040
     Dates: start: 20130312, end: 20130312
  2. AFLIBERCEPT [Suspect]
     Indication: COLORECTAL CANCER METASTATIC
     Dosage: 222 MG, EVERY OTHER WEEK, INTRAVENOUS (NOT OTHERWISE SPECIFIED)?
     Route: 042
     Dates: start: 20130312, end: 20130312
  3. IRINOTECAN [Suspect]
     Indication: COLORECTAL CANCER METASTATIC
     Dosage: 286, EVERY OTHER WEEK, INTRAVENOUS (NOT OTHERWISE SPECIFIED)?
     Route: 042
     Dates: start: 20130312, end: 20130312
  4. LEUCOVORIN (FOLINIC ACID) (SOLUTION FOR INFUSION) (FOLINIC ACID) [Suspect]
     Indication: COLORECTAL CANCER METASTATIC
     Dosage: 318 MG , EVERY OTHER WEEK, INTRAVENOUS (NOT OTHERWISE SPECIFIED)?
     Route: 042
     Dates: start: 20130312, end: 20130312
  5. MOVICOL (MOVICOL /01749801/) (SODIUM BICARBONATE, POTASSIUM CHLORIDE, SODIUM CHLORIDE, MACROGOL 3350) [Concomitant]
  6. FRAXODI (NADROPARIN CALCIUM) (NADROPARIN CALCIUM) [Concomitant]
  7. DOMPERIDONE (DOMPERIDONE) (DOMPERIDONE) [Concomitant]
  8. PERIO CHIP (CHLORHEXIDINE GLUCONATE) (CHLORHEXIDINE GLUCONATE) [Concomitant]
  9. DULCO-LAXO (BISACODYL) (BISACODYL) [Concomitant]
  10. DAFLON (DIOSMIN) (DIOSMIN) [Concomitant]
  11. DAFALGAN (PARACETAMOL) (PARACETAMOL) [Concomitant]
  12. SCHERIPROCT (SCHERIPROCT N /00212301/) [Concomitant]

REACTIONS (6)
  - Gastrointestinal perforation [None]
  - Diarrhoea [None]
  - Pyrexia [None]
  - Abdominal pain [None]
  - Gallbladder disorder [None]
  - Neoplasm [None]
